FAERS Safety Report 24277826 (Version 3)
Quarter: 2024Q4

REPORT INFORMATION
  Report Type: Spontaneous
  Country: US (occurrence: US)
  Receive Date: 20240903
  Receipt Date: 20241228
  Transmission Date: 20250114
  Serious: Yes (Other)
  Sender: GLENMARK
  Company Number: US-GLENMARK PHARMACEUTICALS-2024GMK093280

PATIENT

DRUGS (4)
  1. TACROLIMUS [Suspect]
     Active Substance: TACROLIMUS
     Indication: Atopic keratoconjunctivitis
     Dosage: UNK
     Route: 061
  2. TRIAMCINOLONE ACETONIDE [Suspect]
     Active Substance: TRIAMCINOLONE ACETONIDE
     Indication: Atopic keratoconjunctivitis
     Dosage: UNK, ROUTINE SUBCONJUNCTIVAL TRIAMCINOLONE INJECTIONS
     Route: 057
  3. CYCLOSPORINE [Suspect]
     Active Substance: CYCLOSPORINE
     Indication: Atopic keratoconjunctivitis
     Dosage: UNK
     Route: 061
  4. PREDNISOLONE [Suspect]
     Active Substance: PREDNISOLONE
     Indication: Atopic keratoconjunctivitis
     Dosage: UNK
     Route: 061

REACTIONS (6)
  - Visual acuity reduced [Recovering/Resolving]
  - Eye pruritus [Recovering/Resolving]
  - Reaction to preservatives [Unknown]
  - Vision blurred [Recovering/Resolving]
  - Product administered at inappropriate site [Unknown]
  - Drug ineffective for unapproved indication [Unknown]
